FAERS Safety Report 13285918 (Version 1)
Quarter: 2017Q1

REPORT INFORMATION
  Report Type: Spontaneous
  Country: AU (occurrence: AU)
  Receive Date: 20170301
  Receipt Date: 20170301
  Transmission Date: 20170428
  Serious: Yes (Hospitalization)
  Sender: FDA-Public Use
  Company Number: AU-MYLANLABS-2017M1011764

PATIENT

DRUGS (1)
  1. CORDILOX 180 SR VERAPAMIL HYDROCHLORIDE 180MG TABLET BLISTER PACK [Suspect]
     Active Substance: VERAPAMIL HYDROCHLORIDE
     Indication: PRODUCT USED FOR UNKNOWN INDICATION
     Dosage: UNK

REACTIONS (2)
  - Oral mucosal blistering [Unknown]
  - Rash [Unknown]
